FAERS Safety Report 8071994-0 (Version None)
Quarter: 2012Q1

REPORT INFORMATION
  Report Type: 
  Country: None (occurrence: None)
  Receive Date: 20120119
  Receipt Date: 20120110
  Transmission Date: 20120608
  Serious: Yes (Disabling)
  Sender: FDA-Public Use
  Company Number: DSM-2012-00024

PATIENT
  Sex: Male

DRUGS (2)
  1. ZOLNOR (OLMESARTAN MEDOXOMIL, AMLODIPINE BESILATE) (TABLET) (OLMESARTA [Suspect]
     Indication: HYPERTENSION
     Dosage: 20/5 MG, ORAL
     Route: 048
     Dates: start: 20120108, end: 20120108
  2. TENORETIC (CHLORTALIDONE, ATENOLOL) (CHLORTALIDONE, ATENOLOL) [Concomitant]

REACTIONS (3)
  - NAUSEA [None]
  - DIZZINESS [None]
  - MALAISE [None]
